FAERS Safety Report 7002211-8 (Version None)
Quarter: 2010Q3

REPORT INFORMATION
  Report Type: 
  Country: None (occurrence: None)
  Receive Date: 20100920
  Receipt Date: 20100311
  Transmission Date: 20110219
  Serious: Yes (Other)
  Sender: FDA-Public Use
  Company Number: US-ASTRAZENECA-2009UW03766

PATIENT
  Age: 471 Month
  Sex: Female

DRUGS (6)
  1. SEROQUEL [Suspect]
     Indication: DEPRESSION
     Route: 048
     Dates: start: 20030606, end: 20070521
  2. SEROQUEL [Suspect]
     Indication: SCHIZOPHRENIA
     Route: 048
     Dates: start: 20030606, end: 20070521
  3. CLOZARIL [Concomitant]
     Dates: start: 20080101
  4. HALDOL [Concomitant]
     Dates: start: 20050101
  5. RISPERDAL [Concomitant]
     Dates: start: 20020101
  6. ZYPREXA [Concomitant]
     Dates: start: 20030101

REACTIONS (2)
  - DIABETIC COMA [None]
  - TYPE 2 DIABETES MELLITUS [None]
